FAERS Safety Report 6928112-9 (Version None)
Quarter: 2010Q3

REPORT INFORMATION
  Report Type: 
  Country: None (occurrence: None)
  Receive Date: 20100817
  Receipt Date: 20100802
  Transmission Date: 20110219
  Serious: Yes (Other)
  Sender: FDA-Public Use
  Company Number: PHHY2010FR51351

PATIENT
  Sex: Female

DRUGS (5)
  1. FEMARA [Suspect]
     Indication: BREAST CANCER
     Dosage: 2.5 MG, QD
     Route: 048
     Dates: start: 20100104, end: 20100202
  2. LEUPROLIDE ACETATE [Concomitant]
     Dosage: 11.25 MG, UNK
     Dates: start: 20100310
  3. LEUPROLIDE ACETATE [Concomitant]
     Dosage: 11.25 MG, EVERY 3 MONTHS
     Dates: start: 20081028
  4. AROMASIN [Concomitant]
     Dosage: UNK
     Dates: start: 20100503
  5. ESOMEPRAZOLE MAGNESIUM [Concomitant]
     Dosage: WHEN NECESSARY

REACTIONS (8)
  - CHILLS [None]
  - HYPERHIDROSIS [None]
  - INTERTRIGO [None]
  - POST INFLAMMATORY PIGMENTATION CHANGE [None]
  - PRURITUS [None]
  - SKIN LESION [None]
  - SKIN PLAQUE [None]
  - TOXIC SKIN ERUPTION [None]
